FAERS Safety Report 15940949 (Version 6)
Quarter: 2021Q2

REPORT INFORMATION
  Report Type: Spontaneous
  Country: US (occurrence: US)
  Receive Date: 20190208
  Receipt Date: 20210625
  Transmission Date: 20210716
  Serious: Yes (Other)
  Sender: FDA-Public Use
  Company Number: US-ASTRAZENECA-2018SE99765

PATIENT
  Age: 11935 Day
  Sex: Male
  Weight: 117 kg

DRUGS (79)
  1. PROGRAF [Concomitant]
     Active Substance: TACROLIMUS
     Indication: TRANSPLANT REJECTION
     Dates: start: 20070123
  2. OXYCODONE?ACETAMINOPHEN [Concomitant]
     Active Substance: ACETAMINOPHEN\OXYCODONE HYDROCHLORIDE
  3. LACTATED RINGERS SOLUTION [Concomitant]
     Active Substance: CALCIUM CHLORIDE\POTASSIUM CHLORIDE\SODIUM CHLORIDE\SODIUM LACTATE
  4. MIRALAX [Concomitant]
     Active Substance: POLYETHYLENE GLYCOL 3350
  5. PRILOSEC [Suspect]
     Active Substance: OMEPRAZOLE MAGNESIUM
     Indication: GASTROOESOPHAGEAL REFLUX DISEASE
     Route: 048
     Dates: start: 20080814
  6. PRILOSEC [Suspect]
     Active Substance: OMEPRAZOLE MAGNESIUM
     Indication: GASTROOESOPHAGEAL REFLUX DISEASE
     Dosage: GENERIC
     Route: 065
     Dates: start: 20080911
  7. PRILOSEC OTC [Suspect]
     Active Substance: OMEPRAZOLE MAGNESIUM
     Route: 048
  8. AZITHROMYCIN ANHYDROUS. [Concomitant]
     Active Substance: AZITHROMYCIN ANHYDROUS
     Dates: start: 20070102
  9. ENALAPRIL MALEATE. [Concomitant]
     Active Substance: ENALAPRIL MALEATE
     Indication: BLOOD PRESSURE ABNORMAL
     Dates: start: 20070119
  10. CILOSTAZOL. [Concomitant]
     Active Substance: CILOSTAZOL
     Indication: COAGULATION TIME SHORTENED
     Dates: start: 20070728
  11. MAGNESIUM [Concomitant]
     Active Substance: MAGNESIUM
     Indication: HYPOMAGNESAEMIA
     Dates: start: 2018
  12. PROAIR HFA [Concomitant]
     Active Substance: ALBUTEROL SULFATE
  13. PILOCARPINE. [Concomitant]
     Active Substance: PILOCARPINE
  14. PERCOCET [Concomitant]
     Active Substance: ACETAMINOPHEN\OXYCODONE HYDROCHLORIDE
  15. MAGNESIUM [Concomitant]
     Active Substance: MAGNESIUM
  16. POLYETHYLENE GLYCOL [Concomitant]
     Active Substance: POLYETHYLENE GLYCOLS
  17. NEXIUM 24HR [Suspect]
     Active Substance: ESOMEPRAZOLE MAGNESIUM
     Indication: GASTROOESOPHAGEAL REFLUX DISEASE
     Route: 048
     Dates: start: 2011
  18. PREVACID [Suspect]
     Active Substance: LANSOPRAZOLE
     Indication: GASTROOESOPHAGEAL REFLUX DISEASE
     Route: 065
     Dates: start: 200001, end: 200101
  19. PROTONIX [Suspect]
     Active Substance: PANTOPRAZOLE SODIUM
     Indication: GASTROOESOPHAGEAL REFLUX DISEASE
     Route: 065
     Dates: start: 20080212
  20. HUMULIN NOS [Concomitant]
     Active Substance: INSULIN HUMAN
  21. LIDOCAINE. [Concomitant]
     Active Substance: LIDOCAINE
  22. HYTRIN [Concomitant]
     Active Substance: TERAZOSIN HYDROCHLORIDE
  23. TESTOSTERONE CYPIONATE. [Concomitant]
     Active Substance: TESTOSTERONE CYPIONATE
  24. ZOSYN [Concomitant]
     Active Substance: PIPERACILLIN SODIUM\TAZOBACTAM SODIUM
  25. NEXIUM [Suspect]
     Active Substance: ESOMEPRAZOLE MAGNESIUM
     Indication: GASTROOESOPHAGEAL REFLUX DISEASE
     Route: 048
     Dates: start: 20181125
  26. PRILOSEC [Suspect]
     Active Substance: OMEPRAZOLE MAGNESIUM
     Indication: GASTROOESOPHAGEAL REFLUX DISEASE
     Route: 048
     Dates: start: 19980101, end: 19990128
  27. PREVACID 24 HR [Suspect]
     Active Substance: LANSOPRAZOLE
     Route: 065
  28. PROTONIX [Suspect]
     Active Substance: PANTOPRAZOLE SODIUM
     Indication: GASTROOESOPHAGEAL REFLUX DISEASE
     Route: 065
     Dates: start: 20000202, end: 20171231
  29. BACLOFEN. [Concomitant]
     Active Substance: BACLOFEN
     Indication: MUSCLE SPASMS
     Dates: start: 2014
  30. METOLAZONE. [Concomitant]
     Active Substance: METOLAZONE
     Indication: FLUID RETENTION
     Dates: start: 2019
  31. TRAMADOL. [Concomitant]
     Active Substance: TRAMADOL
     Indication: BACK PAIN
     Dates: start: 2015, end: 2019
  32. VITAMIN B1 [Concomitant]
     Active Substance: THIAMINE HYDROCHLORIDE
     Indication: VITAMIN B1 DEFICIENCY
     Dates: start: 2016
  33. AMOX?CLAV [Concomitant]
     Active Substance: AMOXICILLIN\CLAVULANATE POTASSIUM
  34. MUPIROCIN. [Concomitant]
     Active Substance: MUPIROCIN
  35. HEPARIN SODIUM. [Concomitant]
     Active Substance: HEPARIN SODIUM
  36. HYDROCORTISONE. [Concomitant]
     Active Substance: HYDROCORTISONE
  37. SODIUM CHLORIDE. [Concomitant]
     Active Substance: SODIUM CHLORIDE
  38. NALOXONE [Concomitant]
     Active Substance: NALOXONE
  39. ACETAMINOPHEN. [Concomitant]
     Active Substance: ACETAMINOPHEN
  40. LABETALOL [Concomitant]
     Active Substance: LABETALOL\LABETALOL HYDROCHLORIDE
  41. NEXIUM 24HR [Suspect]
     Active Substance: ESOMEPRAZOLE MAGNESIUM
     Indication: GASTROOESOPHAGEAL REFLUX DISEASE
     Route: 048
  42. PREDNISOLONE. [Concomitant]
     Active Substance: PREDNISOLONE
     Dates: start: 20070102
  43. ASPIRINE [Concomitant]
     Active Substance: ASPIRIN
     Dates: start: 20070107
  44. METOPROLOL SUCCINATE. [Concomitant]
     Active Substance: METOPROLOL SUCCINATE
     Indication: BLOOD PRESSURE ABNORMAL
     Dates: start: 20070216
  45. VITAMIN D3 [Concomitant]
     Active Substance: CHOLECALCIFEROL
     Indication: VITAMIN D DECREASED
     Dates: start: 2016
  46. IRON [Concomitant]
     Active Substance: IRON
     Indication: RED BLOOD CELL ABNORMALITY
     Dates: start: 2019
  47. MORPHINE [Concomitant]
     Active Substance: MORPHINE
  48. FENTANYL. [Concomitant]
     Active Substance: FENTANYL
  49. ONDANSETRON [Concomitant]
     Active Substance: ONDANSETRON
  50. GLUCAGON. [Concomitant]
     Active Substance: GLUCAGON
  51. AMLODIPINE [Concomitant]
     Active Substance: AMLODIPINE BESYLATE
  52. WELLBUTERIN [Concomitant]
  53. REGRANEX [Concomitant]
     Active Substance: BECAPLERMIN
  54. ACETARSOL/NYSTATIN/NEOMYCIN/POLYMYXIN B SULFATE [Concomitant]
  55. PRILOSEC [Suspect]
     Active Substance: OMEPRAZOLE MAGNESIUM
     Indication: GASTROOESOPHAGEAL REFLUX DISEASE
     Route: 048
     Dates: start: 200701, end: 200706
  56. PRILOSEC [Suspect]
     Active Substance: OMEPRAZOLE MAGNESIUM
     Indication: GASTROOESOPHAGEAL REFLUX DISEASE
     Route: 048
  57. PROTONIX [Suspect]
     Active Substance: PANTOPRAZOLE SODIUM
     Indication: GASTROOESOPHAGEAL REFLUX DISEASE
     Route: 065
     Dates: start: 20000202, end: 20171231
  58. PROTONIX [Suspect]
     Active Substance: PANTOPRAZOLE SODIUM
     Indication: GASTROOESOPHAGEAL REFLUX DISEASE
     Route: 065
     Dates: start: 20070107
  59. PEPCID [Concomitant]
     Active Substance: FAMOTIDINE
     Dates: start: 20070126
  60. CREON [Concomitant]
     Active Substance: PANCRELIPASE AMYLASE\PANCRELIPASE LIPASE\PANCRELIPASE PROTEASE
     Indication: DYSPEPSIA
     Dates: start: 2016
  61. FUROSEMIDE. [Concomitant]
     Active Substance: FUROSEMIDE
     Indication: FLUID RETENTION
     Dates: start: 2018
  62. ZYMAR [Concomitant]
     Active Substance: GATIFLOXACIN
  63. MONOJECT [Concomitant]
  64. TUDORZA [Concomitant]
     Active Substance: ACLIDINIUM BROMIDE
  65. METOCLOPRAMIDE. [Concomitant]
     Active Substance: METOCLOPRAMIDE
     Indication: ABDOMINAL DISCOMFORT
     Dates: start: 20070119
  66. ALENDRONATE SODIUM. [Concomitant]
     Active Substance: ALENDRONATE SODIUM
     Dates: start: 20080407
  67. SULFAMETHOXAZOLE/TMP DS [Concomitant]
     Active Substance: SULFAMETHOXAZOLE\TRIMETHOPRIM
     Dates: start: 20070131
  68. BUPROPION. [Concomitant]
     Active Substance: BUPROPION
     Indication: DEPRESSION
     Dates: start: 2015
  69. OMEGA 3 [Concomitant]
     Active Substance: OMEGA-3 FATTY ACIDS
     Indication: CARDIAC DISORDER
     Dates: start: 2015
  70. CALCIUM [Concomitant]
     Active Substance: CALCIUM
     Indication: MULTIPLE FRACTURES
     Dates: start: 2006
  71. METOPROLOL. [Concomitant]
     Active Substance: METOPROLOL
  72. DILAUDID [Concomitant]
     Active Substance: HYDROMORPHONE HYDROCHLORIDE
  73. COLACE [Concomitant]
     Active Substance: DOCUSATE SODIUM
  74. PROTONIX [Suspect]
     Active Substance: PANTOPRAZOLE SODIUM
     Indication: GASTROOESOPHAGEAL REFLUX DISEASE
     Route: 065
     Dates: start: 200701, end: 200706
  75. PREDNISONE. [Concomitant]
     Active Substance: PREDNISONE
     Indication: TRANSPLANT REJECTION
     Dates: start: 20070204
  76. NIFEDIPINE. [Concomitant]
     Active Substance: NIFEDIPINE
     Indication: BLOOD PRESSURE ABNORMAL
  77. BUMETANIDE. [Concomitant]
     Active Substance: BUMETANIDE
     Indication: FLUID RETENTION
     Dates: start: 20190309
  78. CEPHALEXIN. [Concomitant]
     Active Substance: CEPHALEXIN
  79. PROPOFOL. [Concomitant]
     Active Substance: PROPOFOL

REACTIONS (6)
  - End stage renal disease [Not Recovered/Not Resolved]
  - Tubulointerstitial nephritis [Not Recovered/Not Resolved]
  - Renal failure [Unknown]
  - Renal injury [Unknown]
  - Acute kidney injury [Not Recovered/Not Resolved]
  - Chronic kidney disease [Not Recovered/Not Resolved]

NARRATIVE: CASE EVENT DATE: 20071111
